FAERS Safety Report 5132200-X (Version None)
Quarter: 2006Q4

REPORT INFORMATION
  Report Type: 
  Country: None (occurrence: None)
  Receive Date: 20061017
  Receipt Date: 20061009
  Transmission Date: 20070319
  Serious: Yes (Hospitalization, Other)
  Sender: FDA-Public Use
  Company Number: 2006BH013288

PATIENT
  Age: 59 Year
  Sex: Male

DRUGS (1)
  1. DIANEAL [Suspect]
     Indication: RENAL FAILURE CHRONIC
     Dosage: IP

REACTIONS (6)
  - CULTURE POSITIVE [None]
  - HAEMODIALYSIS [None]
  - MYCOBACTERIUM CHELONEI INFECTION [None]
  - NEUTROPHIL COUNT INCREASED [None]
  - PERITONITIS BACTERIAL [None]
  - WHITE BLOOD CELL COUNT DECREASED [None]
